FAERS Safety Report 7542786-3 (Version None)
Quarter: 2011Q2

REPORT INFORMATION
  Report Type: 
  Country: None (occurrence: None)
  Receive Date: 20110606
  Receipt Date: 20110527
  Transmission Date: 20111010
  Serious: Yes (Hospitalization)
  Sender: FDA-Public Use
  Company Number: DKLU1070992

PATIENT
  Age: 3 Month
  Sex: Female

DRUGS (7)
  1. ATIVAN [Concomitant]
  2. SABRIL [Suspect]
     Indication: EPILEPSY
     Dosage: ORAL 350 MG MILLIGRAM(S), 2 IN 1 D, ORAL
     Route: 048
     Dates: start: 20110512, end: 20110501
  3. SABRIL [Suspect]
     Indication: INFANTILE SPASMS
     Dosage: ORAL 350 MG MILLIGRAM(S), 2 IN 1 D, ORAL
     Route: 048
     Dates: start: 20110512, end: 20110501
  4. SABRIL [Suspect]
     Indication: EPILEPSY
     Dosage: ORAL 350 MG MILLIGRAM(S), 2 IN 1 D, ORAL
     Route: 048
     Dates: start: 20110501
  5. SABRIL [Suspect]
     Indication: INFANTILE SPASMS
     Dosage: ORAL 350 MG MILLIGRAM(S), 2 IN 1 D, ORAL
     Route: 048
     Dates: start: 20110501
  6. PHENOBARBITAL TAB [Concomitant]
  7. TOPAMAX [Concomitant]

REACTIONS (3)
  - RHINOVIRUS INFECTION [None]
  - OTITIS MEDIA [None]
  - DYSPNOEA [None]
